FAERS Safety Report 11107473 (Version 2)
Quarter: 2015Q3

REPORT INFORMATION
  Report Type: Spontaneous
  Country: US (occurrence: US)
  Receive Date: 20150512
  Receipt Date: 20150807
  Transmission Date: 20151125
  Serious: Yes (Hospitalization)
  Sender: FDA-Public Use
  Company Number: US-BAYER-2015-200352

PATIENT
  Age: 31 Year
  Sex: Female
  Weight: 64.4 kg

DRUGS (6)
  1. CYMBALTA [Concomitant]
     Active Substance: DULOXETINE HYDROCHLORIDE
  2. TRAZODONE [Concomitant]
     Active Substance: TRAZODONE HYDROCHLORIDE
  3. CLONAZEPAM. [Concomitant]
     Active Substance: CLONAZEPAM
  4. NORCO [Concomitant]
     Active Substance: ACETAMINOPHEN\HYDROCODONE BITARTRATE
  5. MIRENA [Suspect]
     Active Substance: LEVONORGESTREL
     Indication: CONTRACEPTION
     Dosage: 20 MCG/24HR, CONT
     Route: 015
     Dates: start: 20060105, end: 20071220
  6. SKELAXIN [Concomitant]
     Active Substance: METAXALONE

REACTIONS (6)
  - Injury [None]
  - Depression [None]
  - Emotional distress [None]
  - Device dislocation [None]
  - Gallbladder pain [None]
  - Abdominal pain upper [None]

NARRATIVE: CASE EVENT DATE: 2007
